FAERS Safety Report 13234162 (Version 1)
Quarter: 2017Q1

REPORT INFORMATION
  Report Type: Spontaneous
  Country: US (occurrence: US)
  Receive Date: 20170215
  Receipt Date: 20170215
  Transmission Date: 20170428
  Serious: No
  Sender: FDA-Public Use
  Company Number: None

PATIENT
  Age: 47 Year
  Sex: Female
  Weight: 90.72 kg

DRUGS (7)
  1. OMEGA 3 FISH OIL [Concomitant]
     Active Substance: FISH OIL\OMEGA-3 FATTY ACIDS
  2. IBUPROFEN. [Concomitant]
     Active Substance: IBUPROFEN
  3. COLACE [Concomitant]
     Active Substance: DOCUSATE SODIUM
  4. PERCOCET [Concomitant]
     Active Substance: ACETAMINOPHEN\OXYCODONE HYDROCHLORIDE
  5. ESTRADIOL. [Suspect]
     Active Substance: ESTRADIOL
     Indication: ARTIFICIAL MENOPAUSE
     Dosage: QUANITY - 1 PATCH?FREQUENCY - 1 X EVERY 7 DAYS
     Route: 061
     Dates: start: 20161227, end: 20170117
  6. WOMEN^S ONE A DAY [Concomitant]
  7. VITAMIN D [Concomitant]
     Active Substance: CHOLECALCIFEROL

REACTIONS (8)
  - Burning sensation [None]
  - Pain [None]
  - Application site vesicles [None]
  - Application site erythema [None]
  - Vaginal haemorrhage [None]
  - Emotional distress [None]
  - Blister [None]
  - Depression [None]

NARRATIVE: CASE EVENT DATE: 20170105
